FAERS Safety Report 6334227-9 (Version None)
Quarter: 2009Q3

REPORT INFORMATION
  Report Type: 
  Country: None (occurrence: None)
  Receive Date: 20090829
  Receipt Date: 20090730
  Transmission Date: 20100115
  Serious: No
  Sender: FDA-Public Use
  Company Number: US-ABBOTT-09P-163-0588703-00

PATIENT
  Sex: Female
  Weight: 79.45 kg

DRUGS (11)
  1. SIMCOR [Suspect]
     Indication: BLOOD TRIGLYCERIDES INCREASED
     Dates: start: 20090726
  2. ASPIRIN [Concomitant]
     Indication: DRUG USE FOR UNKNOWN INDICATION
  3. SINGULAIR [Concomitant]
     Indication: DRUG USE FOR UNKNOWN INDICATION
  4. LEVOTHYROXINE [Concomitant]
     Indication: DRUG USE FOR UNKNOWN INDICATION
  5. TRICOR [Concomitant]
     Indication: DRUG USE FOR UNKNOWN INDICATION
  6. PRISTIQ [Concomitant]
     Indication: DRUG USE FOR UNKNOWN INDICATION
  7. VERPAMIL [Concomitant]
     Indication: DRUG USE FOR UNKNOWN INDICATION
  8. ELAVIL [Concomitant]
     Indication: DRUG USE FOR UNKNOWN INDICATION
  9. TEXAVA [Concomitant]
     Indication: DRUG USE FOR UNKNOWN INDICATION
  10. VITAMIN B COMPLEX CAP [Concomitant]
     Indication: DRUG USE FOR UNKNOWN INDICATION
  11. M.V.I. [Concomitant]
     Indication: DRUG USE FOR UNKNOWN INDICATION

REACTIONS (1)
  - PRURITUS [None]
